FAERS Safety Report 25499100 (Version 2)
Quarter: 2025Q3

REPORT INFORMATION
  Report Type: Report from Study
  Country: US (occurrence: US)
  Receive Date: 20250701
  Receipt Date: 20250703
  Transmission Date: 20251021
  Serious: Yes (Other)
  Sender: MYLAN
  Company Number: US-MYLANLABS-2025M1054920

PATIENT
  Sex: Male

DRUGS (12)
  1. GABAPENTIN [Suspect]
     Active Substance: GABAPENTIN
     Indication: Product used for unknown indication
  2. GABAPENTIN [Suspect]
     Active Substance: GABAPENTIN
     Route: 065
  3. GABAPENTIN [Suspect]
     Active Substance: GABAPENTIN
     Route: 065
  4. GABAPENTIN [Suspect]
     Active Substance: GABAPENTIN
  5. CELECOXIB [Suspect]
     Active Substance: CELECOXIB
     Indication: Product used for unknown indication
  6. CELECOXIB [Suspect]
     Active Substance: CELECOXIB
     Route: 065
  7. CELECOXIB [Suspect]
     Active Substance: CELECOXIB
     Route: 065
  8. CELECOXIB [Suspect]
     Active Substance: CELECOXIB
  9. ROSUVASTATIN [Suspect]
     Active Substance: ROSUVASTATIN
     Indication: Product used for unknown indication
  10. ROSUVASTATIN [Suspect]
     Active Substance: ROSUVASTATIN
     Route: 065
  11. ROSUVASTATIN [Suspect]
     Active Substance: ROSUVASTATIN
     Route: 065
  12. ROSUVASTATIN [Suspect]
     Active Substance: ROSUVASTATIN

REACTIONS (1)
  - Cerebrovascular accident [Unknown]
